FAERS Safety Report 22394935 (Version 2)
Quarter: 2023Q2

REPORT INFORMATION
  Report Type: Spontaneous
  Country: US (occurrence: US)
  Receive Date: 20230601
  Receipt Date: 20230621
  Transmission Date: 20230722
  Serious: Yes (Other)
  Sender: FDA-Public Use
  Company Number: US-Stemline Therapeutics, Inc.-2023ST000998

PATIENT
  Age: 59 Year
  Sex: Female

DRUGS (2)
  1. ORSERDU [Suspect]
     Active Substance: ELACESTRANT
     Indication: Product used for unknown indication
     Route: 048
     Dates: start: 20230502
  2. XGEVA [Concomitant]
     Active Substance: DENOSUMAB
     Indication: Product used for unknown indication
     Route: 065

REACTIONS (10)
  - Sacroiliac fracture [Unknown]
  - Fracture pain [Unknown]
  - Bone pain [Unknown]
  - Pain [Unknown]
  - Limb discomfort [Unknown]
  - Myalgia [Unknown]
  - White blood cell count decreased [Unknown]
  - Constipation [Unknown]
  - Nausea [Unknown]
  - Product dose omission issue [Unknown]
